FAERS Safety Report 5121426-7 (Version None)
Quarter: 2006Q4

REPORT INFORMATION
  Report Type: 
  Country: None (occurrence: None)
  Receive Date: 20061002
  Receipt Date: 20060919
  Transmission Date: 20070319
  Serious: Yes (Other)
  Sender: FDA-Public Use
  Company Number: 2006BH008053

PATIENT
  Age: 48 Year

DRUGS (2)
  1. CEFTRIAXONE [Suspect]
     Indication: BRONCHITIS
     Dosage: 2 GM; ONCE;IV
     Route: 042
     Dates: start: 20060409, end: 20060409
  2. DEMEROL [Suspect]
     Indication: BRONCHITIS
     Dosage: 50 MG;ONCE;IV
     Route: 042
     Dates: start: 20060409, end: 20060409

REACTIONS (4)
  - CHEST PAIN [None]
  - DYSPNOEA [None]
  - NAUSEA [None]
  - URTICARIA [None]
